FAERS Safety Report 5448792-7 (Version None)
Quarter: 2007Q3

REPORT INFORMATION
  Report Type: 
  Country: None (occurrence: None)
  Receive Date: 20070911
  Receipt Date: 20070703
  Transmission Date: 20080115
  Serious: No
  Sender: FDA-Public Use
  Company Number: US-BRISTOL-MYERS SQUIBB COMPANY-13813357

PATIENT
  Age: 64 Year
  Sex: Male
  Weight: 77 kg

DRUGS (4)
  1. EMSAM [Suspect]
     Dosage: INCREASED TO 9MG/24H 18-MAY-2007 THEN 12MG/24H 18-JUN-2007
     Route: 062
     Dates: start: 20070503
  2. HYDROCHLOROTHIAZIDE [Concomitant]
  3. LIPITOR [Concomitant]
  4. VERELAN PM [Concomitant]

REACTIONS (3)
  - APPLICATION SITE REACTION [None]
  - OEDEMA PERIPHERAL [None]
  - RASH [None]
